FAERS Safety Report 10039052 (Version 1)
Quarter: 2014Q1

REPORT INFORMATION
  Report Type: Spontaneous
  Country: US (occurrence: None)
  Receive Date: 20140306
  Receipt Date: 20140306
  Transmission Date: 20141002
  Serious: Yes (Hospitalization, Other)
  Sender: FDA-Public Use
  Company Number: 163-21880-13061835

PATIENT
  Age: 60 Year
  Sex: Male

DRUGS (10)
  1. REVLIMID (LENALIDOMIDE) (5 MILLIGRAM, CAPSULES) [Suspect]
     Indication: MYELODYSPLASTIC SYNDROME
     Dosage: 5 MG, 28 IN 28 D, 06/03/2013 - UNKNOWN THERAPY DATES
     Route: 048
     Dates: start: 20130603
  2. HYDROCODONE - HOMATROPINE (HYDROCODONE COMPOUND) [Concomitant]
  3. ALBUTEROL SULFATE (SALBUTAMOL SULFATE) [Concomitant]
  4. CIPRO (CIPROFLOXACIN) [Concomitant]
  5. ZOFRAN (ONDANSETRON HYDROCHLORIDE) [Concomitant]
  6. DRONABINOL (DRONABINOL) [Concomitant]
  7. LANSOPRAZOLE (LANSOPRAZOLE) [Concomitant]
  8. IPRATROPIUM BROMIDE (IPRATROPIUM BROMIDE) [Concomitant]
  9. FLORASTOR [Concomitant]
  10. BACTRIM DS (BACTRIM) [Concomitant]

REACTIONS (4)
  - Decreased appetite [None]
  - Platelet count decreased [None]
  - Full blood count decreased [None]
  - Abdominal discomfort [None]
